FAERS Safety Report 23326043 (Version 1)
Quarter: 2023Q4

REPORT INFORMATION
  Report Type: Spontaneous
  Country: US (occurrence: US)
  Receive Date: 20231221
  Receipt Date: 20231221
  Transmission Date: 20240110
  Serious: Yes (Hospitalization, Other)
  Sender: FDA-Public Use
  Company Number: US-BRACCO-2023US06787

PATIENT
  Age: 82 Year
  Sex: Male

DRUGS (1)
  1. ISOVUE-M 200 [Suspect]
     Active Substance: IOPAMIDOL
     Indication: Spinal myelogram
     Dosage: 20 ML, SINGLE
     Route: 037
     Dates: start: 20231212, end: 20231212

REACTIONS (2)
  - Neurotoxicity [Unknown]
  - Computerised tomogram abnormal [Unknown]

NARRATIVE: CASE EVENT DATE: 20231214
